FAERS Safety Report 17358375 (Version 2)
Quarter: 2020Q2

REPORT INFORMATION
  Report Type: Spontaneous
  Country: JP (occurrence: JP)
  Receive Date: 20200201
  Receipt Date: 20200423
  Transmission Date: 20200713
  Serious: Yes (Hospitalization, Other)
  Sender: FDA-Public Use
  Company Number: JP-ACCORD-171299

PATIENT
  Age: 76 Year
  Sex: Female
  Weight: 43.7 kg

DRUGS (2)
  1. ETANERCEPT [Concomitant]
     Active Substance: ETANERCEPT
     Dates: start: 201108
  2. METHOTREXATE. [Suspect]
     Active Substance: METHOTREXATE
     Indication: RHEUMATOID ARTHRITIS
     Route: 048
     Dates: start: 201506

REACTIONS (4)
  - Duodenal ulcer [Recovering/Resolving]
  - Duodenal ulcer haemorrhage [Recovering/Resolving]
  - Anaemia [Recovering/Resolving]
  - Diffuse large B-cell lymphoma [Recovering/Resolving]

NARRATIVE: CASE EVENT DATE: 201709
